FAERS Safety Report 4558162-1 (Version None)
Quarter: 2005Q1

REPORT INFORMATION
  Report Type: 
  Country: None (occurrence: None)
  Receive Date: 20050103
  Receipt Date: 20041029
  Transmission Date: 20050727
  Serious: Yes (Other)
  Sender: FDA-Public Use
  Company Number: 2004UW22419

PATIENT
  Age: 60 Year
  Sex: Male
  Weight: 81.646 kg

DRUGS (1)
  1. CRESTOR [Suspect]
     Dates: start: 20041026

REACTIONS (1)
  - POLLAKIURIA [None]
